FAERS Safety Report 24812834 (Version 1)
Quarter: 2025Q1

REPORT INFORMATION
  Report Type: Report from Study
  Country: PR (occurrence: PR)
  Receive Date: 20250107
  Receipt Date: 20250107
  Transmission Date: 20250409
  Serious: Yes (Death)
  Sender: ABBVIE
  Company Number: PR-ABBVIE-6072987

PATIENT
  Age: 45 Year
  Sex: Male

DRUGS (1)
  1. HUMIRA [Suspect]
     Active Substance: ADALIMUMAB
     Indication: Product used for unknown indication
     Route: 058
     Dates: start: 2019

REACTIONS (1)
  - Respiratory arrest [Fatal]

NARRATIVE: CASE EVENT DATE: 20220101
